FAERS Safety Report 19154581 (Version 3)
Quarter: 2021Q3

REPORT INFORMATION
  Report Type: Spontaneous
  Country: JP (occurrence: JP)
  Receive Date: 20210419
  Receipt Date: 20210902
  Transmission Date: 20211014
  Serious: No
  Sender: FDA-Public Use
  Company Number: JP-LUPIN PHARMACEUTICALS INC.-2021-04805

PATIENT
  Age: 87 Year
  Sex: Female
  Weight: 41 kg

DRUGS (11)
  1. LEVETIRACETAM. [Suspect]
     Active Substance: LEVETIRACETAM
     Dosage: 3000 MILLIGRAM
     Route: 065
  2. FOSPHENYTOIN SODIUM. [Concomitant]
     Active Substance: FOSPHENYTOIN SODIUM
     Indication: STATUS EPILEPTICUS
     Dosage: 1000 MILLIGRAM
     Route: 065
  3. THEOPHYLLINE [Concomitant]
     Active Substance: THEOPHYLLINE ANHYDROUS
     Indication: ASTHMA
     Dosage: 400 MILLIGRAM
     Route: 048
  4. DIAZEPAM. [Concomitant]
     Active Substance: DIAZEPAM
     Indication: STATUS EPILEPTICUS
     Dosage: 5 MILLIGRAM
     Route: 065
  5. LACOSAMIDE. [Concomitant]
     Active Substance: LACOSAMIDE
     Dosage: 200 MILLIGRAM
     Route: 065
  6. EDARAVONE [Concomitant]
     Active Substance: EDARAVONE
     Indication: LACUNAR INFARCTION
     Dosage: UNK
     Route: 065
  7. CILOSTAZOL. [Interacting]
     Active Substance: CILOSTAZOL
     Indication: LACUNAR INFARCTION
     Dosage: 200 MILLIGRAM
     Route: 065
  8. MONTELUKAST SODIUM. [Concomitant]
     Active Substance: MONTELUKAST SODIUM
     Indication: STATUS EPILEPTICUS
     Dosage: 10 MILLIGRAM
     Route: 065
  9. CLOPIDOGREL SULFATE [Concomitant]
     Active Substance: CLOPIDOGREL BISULFATE
     Indication: CEREBRAL INFARCTION
     Dosage: UNK
     Route: 065
  10. LEVETIRACETAM. [Suspect]
     Active Substance: LEVETIRACETAM
     Indication: STATUS EPILEPTICUS
     Dosage: 1000 MILLIGRAM
     Route: 065
  11. LACOSAMIDE. [Concomitant]
     Active Substance: LACOSAMIDE
     Indication: STATUS EPILEPTICUS
     Dosage: 100 MILLIGRAM
     Route: 065

REACTIONS (1)
  - Off label use [Unknown]
